FAERS Safety Report 8830938 (Version 3)
Quarter: 2012Q4

REPORT INFORMATION
  Report Type: 
  Country: ES (occurrence: ES)
  Receive Date: 20121008
  Receipt Date: 20121108
  Transmission Date: 20130627
  Serious: Yes (Other)
  Sender: FDA-Public Use
  Company Number: ES-PFIZER INC-2012245917

PATIENT
  Age: 44 Year
  Sex: Female
  Weight: 58 kg

DRUGS (2)
  1. LYRICA [Suspect]
     Indication: GENERALIZED ANXIETY DISORDER
     Dosage: 50 mg, 1x/day
     Dates: start: 20120611, end: 20120716
  2. PAROXETINE [Concomitant]
     Dosage: 20 mg, UNK
     Route: 048
     Dates: start: 20120611

REACTIONS (2)
  - Menorrhagia [Recovered/Resolved]
  - Iron deficiency [Recovered/Resolved]
